FAERS Safety Report 7450530-3 (Version None)
Quarter: 2011Q2

REPORT INFORMATION
  Report Type: 
  Country: None (occurrence: None)
  Receive Date: 20110502
  Receipt Date: 20110422
  Transmission Date: 20111010
  Serious: Yes (Other)
  Sender: FDA-Public Use
  Company Number: PHHY2011US34658

PATIENT
  Sex: Male

DRUGS (6)
  1. DIOVAN HCT [Suspect]
     Dosage: 1 DF, UNK
  2. VITAMIN D [Concomitant]
  3. INSULIN [Concomitant]
  4. CRESTOR [Concomitant]
  5. PLAVIX [Concomitant]
  6. DIOVAN HCT [Suspect]
     Dosage: 2 DF, UNK

REACTIONS (3)
  - COLON CANCER [None]
  - HYPOTENSION [None]
  - TREMOR [None]
